FAERS Safety Report 6759379-8 (Version None)
Quarter: 2010Q2

REPORT INFORMATION
  Report Type: 
  Country: None (occurrence: None)
  Receive Date: 20100607
  Receipt Date: 20100525
  Transmission Date: 20101027
  Serious: Yes (Hospitalization, Other)
  Sender: FDA-Public Use
  Company Number: US-ELI_LILLY_AND_COMPANY-US201004005164

PATIENT
  Sex: Female

DRUGS (14)
  1. FORTEO [Suspect]
     Indication: OSTEOPOROSIS
     Dosage: 20 UG, DAILY (1/D)
     Route: 065
     Dates: start: 20090707
  2. FORTEO [Suspect]
     Dosage: 20 UG, QOD
  3. FORTEO [Suspect]
     Dosage: 20 UG, DAILY (1/D)
     Dates: end: 20100419
  4. FORTEO [Suspect]
     Dosage: 20 UG, DAILY (1/D)
     Dates: start: 20100428
  5. SIMVASTATIN [Concomitant]
     Indication: BLOOD CHOLESTEROL
  6. LISINOPRIL [Concomitant]
     Indication: BLOOD PRESSURE
  7. CITALOPRAM [Concomitant]
     Dosage: 30 MG, UNKNOWN
  8. HYDROCHLOROTHIAZIDE [Concomitant]
     Dosage: 25 MG, DAILY (1/D)
  9. VITAMIN D [Concomitant]
     Dosage: 50000 U, WEEKLY (1/W)
  10. CALCIUM CARBONATE [Concomitant]
     Dosage: UNK, 3/D
  11. ASPIRIN [Concomitant]
  12. CENTRUM [Concomitant]
  13. LOVAZA [Concomitant]
  14. KETOROLAC TROMETHAMINE [Concomitant]

REACTIONS (5)
  - ARTHROPATHY [None]
  - BLOOD PRESSURE DECREASED [None]
  - MUSCLE SPASMS [None]
  - PAIN [None]
  - PAIN IN EXTREMITY [None]
